FAERS Safety Report 6976046-6 (Version None)
Quarter: 2010Q3

REPORT INFORMATION
  Report Type: 
  Country: None (occurrence: None)
  Receive Date: 20100910
  Receipt Date: 20100831
  Transmission Date: 20110219
  Serious: Yes (Death, Hospitalization)
  Sender: FDA-Public Use
  Company Number: FR-PFIZER INC-2010043611

PATIENT
  Age: 71 Year
  Sex: Female

DRUGS (9)
  1. ZYVOX [Suspect]
     Dosage: 1200 MG, 1X/DAY
     Route: 048
     Dates: end: 20100324
  2. VALGANCICLOVIR (ROVALCYTE) [Suspect]
     Indication: CYTOMEGALOVIRUS VIRAEMIA
     Dosage: UNK
     Route: 048
     Dates: start: 20100301, end: 20100323
  3. CELLCEPT [Suspect]
     Dosage: 500 MG, 3X/DAY
     Route: 048
     Dates: start: 20090601
  4. PROGRAF [Concomitant]
  5. CORTANCYL [Concomitant]
  6. ATENOLOL [Concomitant]
  7. ATORVASTATIN [Concomitant]
  8. ASPEGIC 1000 [Concomitant]
  9. BACTRIM [Concomitant]

REACTIONS (1)
  - PANCYTOPENIA [None]
